FAERS Safety Report 5778519-0 (Version None)
Quarter: 2008Q2

REPORT INFORMATION
  Report Type: 
  Country: None (occurrence: None)
  Receive Date: 20080618
  Receipt Date: 20080618
  Transmission Date: 20081010
  Serious: No
  Sender: FDA-Public Use
  Company Number: None

PATIENT
  Age: 87 Year
  Sex: Male
  Weight: 97.07 kg

DRUGS (2)
  1. GABAPENTIN [Suspect]
     Indication: PAIN
     Dosage: 100 MG TID PO
     Route: 048
     Dates: start: 20070105, end: 20070521
  2. GABAPENTIN [Suspect]
     Indication: SCIATICA
     Dosage: 100 MG TID PO
     Route: 048
     Dates: start: 20070105, end: 20070521

REACTIONS (4)
  - DIZZINESS [None]
  - FEELING ABNORMAL [None]
  - HYPOTENSION [None]
  - SEDATION [None]
